FAERS Safety Report 9168140 (Version 4)
Quarter: 2013Q2

REPORT INFORMATION
  Report Type: Spontaneous
  Country: US (occurrence: US)
  Receive Date: 20130318
  Receipt Date: 20130516
  Transmission Date: 20140414
  Serious: Yes (Other)
  Sender: FDA-Public Use
  Company Number: US-PFIZER INC-2013088387

PATIENT
  Age: 58 Year
  Sex: Female

DRUGS (1)
  1. LYRICA [Suspect]
     Indication: NEUROPATHY PERIPHERAL
     Dosage: 75 MG, QHS
     Route: 048
     Dates: start: 20070512, end: 20090819

REACTIONS (3)
  - Tooth fracture [Unknown]
  - Allergy to chemicals [Unknown]
  - Dental caries [Unknown]
